FAERS Safety Report 6096992-8 (Version None)
Quarter: 2009Q1

REPORT INFORMATION
  Report Type: 
  Country: None (occurrence: None)
  Receive Date: 20090227
  Receipt Date: 20090213
  Transmission Date: 20090719
  Serious: Yes (Hospitalization, Other)
  Sender: FDA-Public Use
  Company Number: PHHY2009JP05448

PATIENT
  Sex: Female
  Weight: 52 kg

DRUGS (4)
  1. DIOVAN [Suspect]
     Indication: HYPERTENSION
     Dosage: 80 MG, QD
     Dates: start: 20071102
  2. CALBLOCK [Concomitant]
     Indication: HYPERTENSION
     Dosage: 16 MG
     Dates: start: 20070315, end: 20080215
  3. AMARYL [Concomitant]
     Dosage: 2 MG
     Route: 048
     Dates: end: 20080803
  4. NOVORAPID [Concomitant]
     Dosage: 18 IU
     Route: 058
     Dates: start: 20080804

REACTIONS (5)
  - BLOOD POTASSIUM INCREASED [None]
  - CONDITION AGGRAVATED [None]
  - DIABETIC NEPHROPATHY [None]
  - HOSPITALISATION [None]
  - RENAL FAILURE [None]
